FAERS Safety Report 5965616-X (Version None)
Quarter: 2008Q4

REPORT INFORMATION
  Report Type: 
  Country: None (occurrence: None)
  Receive Date: 20081125
  Receipt Date: 20081110
  Transmission Date: 20090506
  Serious: Yes (Other)
  Sender: FDA-Public Use
  Company Number: AT-GENENTECH-271949

PATIENT
  Age: 63 Year
  Sex: Female

DRUGS (2)
  1. MABTHERA [Suspect]
     Indication: B-CELL LYMPHOMA
     Dosage: 100 MG, UNK
     Route: 042
     Dates: start: 20000101
  2. ZEVALIN [Suspect]
     Indication: B-CELL LYMPHOMA
     Dosage: 1.6 MG, UNK
     Dates: start: 20000101

REACTIONS (1)
  - LYMPHOMA [None]
